FAERS Safety Report 9433956 (Version 1)
Quarter: 2013Q3

REPORT INFORMATION
  Report Type: Report from Study
  Country: CA (occurrence: CA)
  Receive Date: 20130801
  Receipt Date: 20130801
  Transmission Date: 20140515
  Serious: Yes (Other)
  Sender: FDA-Public Use
  Company Number: CA-JNJFOC-20130713856

PATIENT
  Sex: 0

DRUGS (2)
  1. REACTINE [Suspect]
     Route: 065
  2. REACTINE [Suspect]
     Indication: MULTIPLE ALLERGIES
     Dosage: EVERY DAY
     Route: 065

REACTIONS (2)
  - Epistaxis [Unknown]
  - Drug effect decreased [Unknown]
